FAERS Safety Report 20786625 (Version 1)
Quarter: 2022Q2

REPORT INFORMATION
  Report Type: Other
  Country: CA (occurrence: None)
  Receive Date: 20220505
  Receipt Date: 20220505
  Transmission Date: 20220721
  Serious: Yes (Life-Threatening, Hospitalization, Other)
  Sender: FDA-Public Use
  Company Number: CA-ROCHE-3088932

PATIENT
  Sex: Female
  Weight: 57.8 kg

DRUGS (36)
  1. ACTEMRA [Suspect]
     Active Substance: TOCILIZUMAB
     Indication: Rheumatoid arthritis
     Route: 042
     Dates: start: 20111021, end: 20131101
  2. ACTEMRA [Suspect]
     Active Substance: TOCILIZUMAB
     Route: 042
     Dates: start: 20120330
  3. ACTEMRA [Suspect]
     Active Substance: TOCILIZUMAB
     Route: 042
     Dates: start: 20130222
  4. ACTEMRA [Suspect]
     Active Substance: TOCILIZUMAB
     Route: 042
     Dates: start: 20130322
  5. ACTEMRA [Suspect]
     Active Substance: TOCILIZUMAB
     Dosage: EXPIRY DATES NOT PROVIDED ON PIR
     Route: 042
     Dates: start: 20140822, end: 20210330
  6. ACTEMRA [Suspect]
     Active Substance: TOCILIZUMAB
     Route: 042
     Dates: start: 20150807
  7. ACTEMRA [Suspect]
     Active Substance: TOCILIZUMAB
     Route: 042
     Dates: start: 20150918
  8. ACTEMRA [Suspect]
     Active Substance: TOCILIZUMAB
     Route: 042
     Dates: start: 20180608
  9. RITUXAN [Suspect]
     Active Substance: RITUXIMAB
     Indication: Rheumatoid arthritis
     Dosage: FREQUENCY: DAY 1 + 15
     Route: 042
     Dates: start: 20110214, end: 20110323
  10. PLAVIX [Suspect]
     Active Substance: CLOPIDOGREL BISULFATE
     Indication: Product used for unknown indication
     Route: 065
     Dates: start: 2015
  11. MOXIFLOXACIN [Suspect]
     Active Substance: MOXIFLOXACIN
     Indication: Product used for unknown indication
     Route: 065
  12. HYDROCHLOROTHIAZIDE [Suspect]
     Active Substance: HYDROCHLOROTHIAZIDE
     Indication: Product used for unknown indication
     Route: 065
  13. HYDROCHLOROTHIAZIDE [Suspect]
     Active Substance: HYDROCHLOROTHIAZIDE
     Indication: Oedema
  14. METHOTREXATE [Suspect]
     Active Substance: METHOTREXATE
     Indication: Product used for unknown indication
     Route: 065
  15. METHADONE [Suspect]
     Active Substance: METHADONE HYDROCHLORIDE
     Indication: Back pain
     Route: 065
     Dates: start: 2020
  16. ASPIRIN [Concomitant]
     Active Substance: ASPIRIN
     Dosage: LOW DOSE
     Dates: start: 20140630
  17. LORAZEPAM [Concomitant]
     Active Substance: LORAZEPAM
  18. THEOPHYLLINE [Concomitant]
     Active Substance: THEOPHYLLINE
     Indication: Hypersensitivity
  19. DICLOFENAC SODIUM\MISOPROSTOL [Concomitant]
     Active Substance: DICLOFENAC SODIUM\MISOPROSTOL
  20. VENTOLIN [Concomitant]
     Active Substance: ALBUTEROL SULFATE
     Dates: end: 2014
  21. VITAMIN C [Concomitant]
     Active Substance: ASCORBIC ACID
  22. VITAMIN D3 [Concomitant]
     Active Substance: CHOLECALCIFEROL
  23. FOLIC ACID [Concomitant]
     Active Substance: FOLIC ACID
  24. PULMICORT TURBUHALER [Concomitant]
     Active Substance: BUDESONIDE
  25. ROSUVASTATIN [Concomitant]
     Active Substance: ROSUVASTATIN
  26. PERINDOPRIL [Concomitant]
     Active Substance: PERINDOPRIL
  27. SPIRIVA [Concomitant]
     Active Substance: TIOTROPIUM BROMIDE MONOHYDRATE
  28. PREDNISONE [Concomitant]
     Active Substance: PREDNISONE
     Dates: start: 20140630
  29. PREDNISONE [Concomitant]
     Active Substance: PREDNISONE
     Dates: start: 20140930
  30. SYMBICORT [Concomitant]
     Active Substance: BUDESONIDE\FORMOTEROL FUMARATE DIHYDRATE
  31. METOPROLOL [Concomitant]
     Active Substance: METOPROLOL
  32. CALCIUM [Concomitant]
     Active Substance: CALCIUM
  33. MAGNESIUM [Concomitant]
     Active Substance: MAGNESIUM
  34. VITAMINS [Concomitant]
     Active Substance: VITAMINS
  35. IRON [Concomitant]
     Active Substance: IRON
  36. OLUMIANT [Concomitant]
     Active Substance: BARICITINIB

REACTIONS (61)
  - Myocardial infarction [Unknown]
  - Blood pressure increased [Unknown]
  - Chest pain [Not Recovered/Not Resolved]
  - Cataract [Unknown]
  - Rales [Unknown]
  - Pneumonia viral [Unknown]
  - Tooth abscess [Unknown]
  - Back pain [Unknown]
  - Weight decreased [Not Recovered/Not Resolved]
  - Weight increased [Unknown]
  - Fatigue [Unknown]
  - Nasopharyngitis [Not Recovered/Not Resolved]
  - Sinusitis [Recovering/Resolving]
  - Blood pressure systolic increased [Unknown]
  - Lower respiratory tract infection [Unknown]
  - Peripheral swelling [Unknown]
  - Pain in extremity [Unknown]
  - Arthritis [Not Recovered/Not Resolved]
  - Stress [Unknown]
  - Localised infection [Not Recovered/Not Resolved]
  - Haemoglobin decreased [Recovering/Resolving]
  - Arthralgia [Unknown]
  - Infusion related reaction [Unknown]
  - Blood iron decreased [Unknown]
  - Viral infection [Recovered/Resolved]
  - Haemorrhage [Unknown]
  - Hypersensitivity [Not Recovered/Not Resolved]
  - Nasal congestion [Not Recovered/Not Resolved]
  - Skin laceration [Not Recovered/Not Resolved]
  - Skin abrasion [Unknown]
  - Blood pressure increased [Unknown]
  - Blood pressure systolic increased [Unknown]
  - Blood pressure diastolic decreased [Unknown]
  - Blood pressure systolic abnormal [Unknown]
  - Hyperhidrosis [Unknown]
  - Hypertension [Unknown]
  - Joint swelling [Not Recovered/Not Resolved]
  - Cough [Unknown]
  - Allergic cough [Not Recovered/Not Resolved]
  - Pharyngitis [Not Recovered/Not Resolved]
  - Paranasal sinus hypersecretion [Not Recovered/Not Resolved]
  - Dysphonia [Unknown]
  - Ear pain [Unknown]
  - Sinus pain [Unknown]
  - Sleep apnoea syndrome [Unknown]
  - Oedema [Unknown]
  - Sinusitis [Not Recovered/Not Resolved]
  - Pain [Recovering/Resolving]
  - Blood pressure fluctuation [Unknown]
  - Food allergy [Unknown]
  - Drug hypersensitivity [Unknown]
  - Off label use [Unknown]
  - Pulmonary mass [Unknown]
  - Swelling [Not Recovered/Not Resolved]
  - Infection [Unknown]
  - Body temperature increased [Unknown]
  - Toothache [Unknown]
  - Heart rate increased [Unknown]
  - Hallucination [Unknown]
  - Delusion [Unknown]
  - Dementia [Not Recovered/Not Resolved]

NARRATIVE: CASE EVENT DATE: 20120101
